FAERS Safety Report 7961320-7 (Version None)
Quarter: 2011Q4

REPORT INFORMATION
  Report Type: 
  Country: None (occurrence: None)
  Receive Date: 20111202
  Receipt Date: 20110812
  Transmission Date: 20120403
  Serious: Yes (Death, Life-Threatening, Hospitalization, Disabling, Other)
  Sender: FDA-Public Use
  Company Number: 2011MA011827

PATIENT
  Age: 30 Year
  Sex: Male

DRUGS (11)
  1. MULTIPLE VITAMINS [Concomitant]
  2. CLONIDINE [Concomitant]
  3. ZEMPLAR [Concomitant]
  4. DIGOXIN [Suspect]
     Indication: VENTRICULAR ARRHYTHMIA
     Dosage: .125 MG;QOD;PO
     Route: 048
     Dates: start: 20071114, end: 20071201
  5. LISINOPRIL [Concomitant]
  6. FLUCONAZOLE [Concomitant]
  7. POTASSIUM CHLORIDE [Concomitant]
  8. COREG [Concomitant]
  9. FUROSEMIDE [Concomitant]
  10. INSULIN GLARGINE [Concomitant]
  11. HYDRALAZINE HCL [Concomitant]

REACTIONS (40)
  - SYNCOPE [None]
  - CARDIOMYOPATHY [None]
  - PLEURAL EFFUSION [None]
  - PAIN [None]
  - BLOOD PRESSURE INADEQUATELY CONTROLLED [None]
  - OEDEMA PERIPHERAL [None]
  - OXYGEN SATURATION DECREASED [None]
  - INFLUENZA LIKE ILLNESS [None]
  - DEFORMITY [None]
  - ANXIETY [None]
  - LOSS OF CONSCIOUSNESS [None]
  - DIALYSIS [None]
  - HYPOGLYCAEMIA [None]
  - RESPIRATORY DISTRESS [None]
  - MULTIPLE INJURIES [None]
  - DECREASED APPETITE [None]
  - DIARRHOEA [None]
  - VOMITING [None]
  - LIFE EXPECTANCY SHORTENED [None]
  - ECONOMIC PROBLEM [None]
  - INFLUENZA [None]
  - ASTHENIA [None]
  - AGITATION [None]
  - LEFT VENTRICULAR HYPERTROPHY [None]
  - PULMONARY HYPERTENSION [None]
  - CONFUSIONAL STATE [None]
  - DYSPNOEA [None]
  - RENAL FAILURE ACUTE [None]
  - CARDIOACTIVE DRUG LEVEL BELOW THERAPEUTIC [None]
  - GENERAL PHYSICAL HEALTH DETERIORATION [None]
  - TACHYCARDIA [None]
  - UNEVALUABLE EVENT [None]
  - DEPRESSION [None]
  - MALNUTRITION [None]
  - MYOCARDIAL INFARCTION [None]
  - ANHEDONIA [None]
  - FAMILY STRESS [None]
  - CARDIAC FAILURE CONGESTIVE [None]
  - PULMONARY OEDEMA [None]
  - TEARFULNESS [None]
